FAERS Safety Report 5014146-0 (Version None)
Quarter: 2006Q2

REPORT INFORMATION
  Report Type: 
  Country: None (occurrence: None)
  Receive Date: 20060414
  Receipt Date: 20060206
  Transmission Date: 20061013
  Serious: No
  Sender: FDA-Public Use
  Company Number: 2006SP000629

PATIENT
  Age: 68 Year
  Sex: Female
  Weight: 76.2043 kg

DRUGS (1)
  1. LUNESTA [Suspect]
     Indication: INSOMNIA
     Dosage: 2 MG;ORAL
     Route: 048
     Dates: start: 20060101, end: 20060101

REACTIONS (2)
  - HEART RATE INCREASED [None]
  - PALPITATIONS [None]
